FAERS Safety Report 4777540-9 (Version None)
Quarter: 2005Q3

REPORT INFORMATION
  Report Type: 
  Country: None (occurrence: None)
  Receive Date: 20050923
  Receipt Date: 20050805
  Transmission Date: 20060218
  Serious: Yes (Other)
  Sender: FDA-Public Use
  Company Number: AU-NOVOPROD-246051

PATIENT
  Age: 43 Year
  Sex: Male
  Weight: 100 kg

DRUGS (5)
  1. INSULIN DETEMIR PENFILL [Suspect]
     Dosage: 36 U, QD
     Route: 058
     Dates: start: 20050827
  2. NOVORAPID PENFILL [Suspect]
     Dosage: 52 U, QD
     Route: 058
     Dates: start: 20050827
  3. CELEBREX [Concomitant]
     Dosage: 200 MG, QD
     Route: 048
     Dates: start: 20030101
  4. VIAGRA [Concomitant]
     Indication: ERECTILE DYSFUNCTION
     Dosage: 150 MG, QD
     Route: 048
     Dates: start: 20030101
  5. PARACETAMOL [Concomitant]
     Dosage: 1 G, QD
     Route: 048
     Dates: start: 20050125

REACTIONS (1)
  - RETINAL HAEMORRHAGE [None]
